FAERS Safety Report 8474025-3 (Version None)
Quarter: 2012Q2

REPORT INFORMATION
  Report Type: 
  Country: None (occurrence: None)
  Receive Date: 20120628
  Receipt Date: 20120614
  Transmission Date: 20120825
  Serious: Yes (Other)
  Sender: FDA-Public Use
  Company Number: US-MYLANLABS-2012S1007498

PATIENT
  Age: 32 Year
  Sex: Male

DRUGS (6)
  1. ZYPREXA [Concomitant]
  2. LITHIUM CARBONATE [Concomitant]
  3. HYDROCHLOROTHIAZIDE [Concomitant]
  4. CLOZAPINE [Suspect]
     Indication: PSYCHOTIC DISORDER
     Route: 048
     Dates: end: 20120424
  5. AMLODIPINE [Concomitant]
  6. DEPAKOTE [Concomitant]

REACTIONS (1)
  - GRANULOCYTOPENIA [None]
